FAERS Safety Report 12304803 (Version 1)
Quarter: 2016Q2

REPORT INFORMATION
  Report Type: Spontaneous
  Country: US (occurrence: None)
  Receive Date: 20160425
  Receipt Date: 20160425
  Transmission Date: 20160815
  Serious: Yes (Death)
  Sender: FDA-Public Use
  Company Number: None

PATIENT
  Age: 69 Year
  Sex: Male

DRUGS (2)
  1. CRESTOR [Suspect]
     Active Substance: ROSUVASTATIN CALCIUM
     Indication: LUNG TRANSPLANT
     Route: 048
     Dates: start: 20160301
  2. NOXAFIL [Suspect]
     Active Substance: POSACONAZOLE
     Indication: LUNG TRANSPLANT
     Route: 048
     Dates: start: 20150129

REACTIONS (1)
  - Death [None]
